FAERS Safety Report 9521580 (Version 1)
Quarter: 2013Q3

REPORT INFORMATION
  Report Type: Spontaneous
  Country: DE (occurrence: None)
  Receive Date: 20130911
  Receipt Date: 20130911
  Transmission Date: 20140515
  Serious: Yes (Life-Threatening, Hospitalization)
  Sender: FDA-Public Use
  Company Number: 1885868

PATIENT
  Age: 56 Year
  Sex: Male
  Weight: 80 kg

DRUGS (5)
  1. VANOCOMYCIN HYDROCHLORIDE [Suspect]
     Indication: SEPSIS
     Route: 042
  2. (PIPERACILLIN SODIUM W/ TAZOBACTAM) [Concomitant]
  3. (IMIPENEM) [Concomitant]
  4. (DOXYCYCLINE) [Concomitant]
  5. (PANTOPRAZOLE SODIUM) [Concomitant]

REACTIONS (2)
  - Intestinal haemorrhage [None]
  - Thrombocytopenia [None]
